FAERS Safety Report 23524056 (Version 1)
Quarter: 2024Q1

REPORT INFORMATION
  Report Type: Spontaneous
  Country: US (occurrence: US)
  Receive Date: 20240214
  Receipt Date: 20240214
  Transmission Date: 20240410
  Serious: No
  Sender: FDA-Public Use
  Company Number: US-KARYOPHARM-2024KPT000132

PATIENT

DRUGS (1)
  1. XPOVIO [Suspect]
     Active Substance: SELINEXOR
     Indication: Plasma cell myeloma
     Dosage: DAYS 1,8,15,22,OF 28 DAY CYCLE
     Route: 048
     Dates: start: 20231220

REACTIONS (2)
  - Food intolerance [Unknown]
  - Weight fluctuation [Unknown]
